FAERS Safety Report 9113552 (Version 2)
Quarter: 2013Q1

REPORT INFORMATION
  Report Type: Spontaneous
  Country: US (occurrence: US)
  Receive Date: 20130129
  Receipt Date: 20130306
  Transmission Date: 20140127
  Serious: Yes (Other)
  Sender: FDA-Public Use
  Company Number: US-PFIZER INC-2013034959

PATIENT
  Age: 77 Year
  Sex: Female
  Weight: 63.5 kg

DRUGS (4)
  1. LYRICA [Suspect]
     Indication: NEURALGIA
     Dosage: 150 MG, 2X/DAY
     Route: 048
     Dates: start: 20130117, end: 20130121
  2. ATENOLOL [Concomitant]
     Indication: CARDIAC FAILURE CONGESTIVE
     Dosage: 25 MG, 2X/DAY
  3. CORTISONE [Concomitant]
     Indication: CARDIAC DISORDER
     Dosage: 300 MG, DAILY
  4. ASPIRIN [Concomitant]
     Indication: CARDIAC DISORDER
     Dosage: 81 MG, DAILY

REACTIONS (4)
  - Suicidal ideation [Recovered/Resolved]
  - Drug ineffective [Unknown]
  - Confusional state [Unknown]
  - Somnolence [Unknown]
